FAERS Safety Report 8128990-4 (Version None)
Quarter: 2012Q1

REPORT INFORMATION
  Report Type: 
  Country: None (occurrence: None)
  Receive Date: 20120210
  Receipt Date: 20120202
  Transmission Date: 20120608
  Serious: Yes (Other)
  Sender: FDA-Public Use
  Company Number: DE-VERTEX PHARMACEUTICALS INC.-000000000000000182

PATIENT
  Age: 61 Year
  Sex: Male

DRUGS (5)
  1. TESTOSTERONE [Concomitant]
     Dosage: DOSAGE FORM: UNSPECIFIED
     Route: 065
  2. ANTIVIRALS [Concomitant]
  3. INCIVO (TELAPREVIR) [Suspect]
     Indication: PRODUCT USED FOR UNKNOWN INDICATION
     Dosage: DOSAGE FORM: TABLET
     Route: 048
     Dates: start: 20120101
  4. PANTOPRAZOLE [Concomitant]
     Dosage: DOSAGE FORM: UNSPECIFIED
     Route: 065
  5. ESCITALOPRAM [Concomitant]
     Dosage: DOSAGE FORM: UNSPECIFIED
     Route: 065

REACTIONS (3)
  - HEADACHE [None]
  - DEPRESSION [None]
  - NAUSEA [None]
